FAERS Safety Report 21419244 (Version 3)
Quarter: 2023Q1

REPORT INFORMATION
  Report Type: Report from Study
  Country: US (occurrence: US)
  Receive Date: 20221006
  Receipt Date: 20230327
  Transmission Date: 20230418
  Serious: No
  Sender: FDA-Public Use
  Company Number: US-ABBVIE-4134733

PATIENT
  Age: 85 Year
  Sex: Female
  Weight: 41.73 kg

DRUGS (5)
  1. HUMIRA [Suspect]
     Active Substance: ADALIMUMAB
     Indication: Crohn^s disease
     Route: 058
     Dates: start: 20220922
  2. CALCIUM VITAMIN D3 [Concomitant]
     Indication: Product used for unknown indication
     Route: 048
  3. PFIZER-BIONTECH COVID-19 VACCINE [Concomitant]
     Active Substance: TOZINAMERAN
     Indication: COVID-19 immunisation
     Dosage: ONE IN ONE DAYS 1 ST DOSE
     Route: 030
  4. Metazole [Concomitant]
     Indication: Product used for unknown indication
  5. VITAMIN B12 [Concomitant]
     Active Substance: CYANOCOBALAMIN
     Indication: Product used for unknown indication
     Route: 048

REACTIONS (6)
  - Injection site reaction [Recovered/Resolved]
  - Injection site erythema [Recovering/Resolving]
  - Injection site reaction [Recovered/Resolved]
  - Injection site pruritus [Recovering/Resolving]
  - Injection site reaction [Recovered/Resolved]
  - Injection site reaction [Recovered/Resolved]

NARRATIVE: CASE EVENT DATE: 20221006
